FAERS Safety Report 8821466 (Version 1)
Quarter: 2012Q4

REPORT INFORMATION
  Report Type: 
  Country: US (occurrence: US)
  Receive Date: 20121002
  Receipt Date: 20121002
  Transmission Date: 20130627
  Serious: Yes (Other)
  Sender: FDA-Public Use
  Company Number: US-ROCHE-1137069

PATIENT
  Sex: Female
  Weight: 62.38 kg

DRUGS (9)
  1. RITUXAN [Suspect]
     Indication: CHRONIC LYMPHOCYTIC LEUKAEMIA
     Route: 065
     Dates: start: 19990806
  2. RITUXAN [Suspect]
     Route: 065
     Dates: start: 19990813
  3. ZOLOFT [Concomitant]
     Route: 065
  4. VERAPAMIL [Concomitant]
     Route: 065
  5. VITAMINS [Concomitant]
     Route: 065
  6. PREVACID [Concomitant]
     Route: 065
  7. MIACALCIN NASAL SPRAY [Concomitant]
     Route: 065
  8. TYLENOL [Concomitant]
     Route: 065
  9. FLUDARABINE [Concomitant]

REACTIONS (4)
  - Muscle twitching [Unknown]
  - Tremor [Unknown]
  - Oesophagitis [Unknown]
  - Chest discomfort [Unknown]
